FAERS Safety Report 17154570 (Version 1)
Quarter: 2019Q4

REPORT INFORMATION
  Report Type: Report from Study
  Country: None (occurrence: AR)
  Receive Date: 20191214
  Receipt Date: 20191214
  Transmission Date: 20200122
  Serious: Yes (Other)
  Sender: FDA-Public Use
  Company Number: AR-ABBVIE-19K-007-3194390-00

PATIENT
  Sex: Female

DRUGS (1)
  1. HUMIRA [Suspect]
     Active Substance: ADALIMUMAB
     Indication: PSORIATIC ARTHROPATHY
     Route: 058
     Dates: start: 20190729

REACTIONS (4)
  - Nail growth abnormal [Not Recovered/Not Resolved]
  - Benign muscle neoplasm [Not Recovered/Not Resolved]
  - Erythema [Unknown]
  - Tumour inflammation [Unknown]

NARRATIVE: CASE EVENT DATE: 2019
